FAERS Safety Report 8078758-2 (Version None)
Quarter: 2012Q1

REPORT INFORMATION
  Report Type: 
  Country: None (occurrence: None)
  Receive Date: 20120125
  Receipt Date: 20120116
  Transmission Date: 20120608
  Serious: Yes (Other)
  Sender: FDA-Public Use
  Company Number: TPA2012A00322

PATIENT
  Age: 62 Year
  Sex: Male
  Weight: 115.6672 kg

DRUGS (6)
  1. METFORMIN HCL [Concomitant]
  2. AMLODIPINE [Concomitant]
  3. ADVICOR (NICOTINIC ACID, LOVASTATIN) [Concomitant]
  4. ATENOLOL [Concomitant]
  5. ACTOS [Suspect]
     Dosage: 30 MG, PER ORAL
     Route: 048
     Dates: start: 20040312, end: 20110610
  6. BENAZEPRIL HCT (HYDROCHLOROTHIAZIDE, BENAZEPRIL HYDROCHLORIDE) [Concomitant]

REACTIONS (1)
  - BLADDER CANCER [None]
